FAERS Safety Report 23123630 (Version 1)
Quarter: 2023Q4

REPORT INFORMATION
  Report Type: Spontaneous
  Country: ES (occurrence: ES)
  Receive Date: 20231030
  Receipt Date: 20231030
  Transmission Date: 20240110
  Serious: Yes (Other)
  Sender: FDA-Public Use
  Company Number: ES-MYLANLABS-2023M1113805

PATIENT
  Age: 41 Year
  Sex: Male

DRUGS (1)
  1. SORAFENIB [Suspect]
     Active Substance: SORAFENIB
     Indication: Hepatocellular carcinoma
     Dosage: 400 MILLIGRAM
     Route: 065
     Dates: start: 202101, end: 202110

REACTIONS (2)
  - Drug ineffective [Unknown]
  - Disease progression [Unknown]
